FAERS Safety Report 10045070 (Version 2)
Quarter: 2014Q1

REPORT INFORMATION
  Report Type: Spontaneous
  Country: US (occurrence: US)
  Receive Date: 20140328
  Receipt Date: 20140328
  Transmission Date: 20141002
  Serious: Yes (Other)
  Sender: FDA-Public Use
  Company Number: US-GE HEALTHCARE MEDICAL DIAGNOSTICS-OSCN-PR-0812S-0647

PATIENT
  Sex: Female

DRUGS (4)
  1. GADOLINIUM (UNSPECIFIED) [Suspect]
     Indication: NEUROPATHY PERIPHERAL
     Route: 042
     Dates: start: 20030909, end: 20030909
  2. GADOLINIUM (UNSPECIFIED) [Suspect]
     Indication: MUSCULAR WEAKNESS
     Route: 042
     Dates: start: 20061218, end: 20061218
  3. GADOLINIUM (UNSPECIFIED) [Suspect]
     Indication: TREMOR
     Route: 042
     Dates: start: 20070505, end: 20070505
  4. GADOLINIUM (UNSPECIFIED) [Suspect]
     Indication: NECK MASS

REACTIONS (1)
  - Nephrogenic systemic fibrosis [Not Recovered/Not Resolved]
